FAERS Safety Report 4390426-7 (Version None)
Quarter: 2004Q2

REPORT INFORMATION
  Report Type: 
  Country: None (occurrence: None)
  Receive Date: 20040630
  Receipt Date: 20040621
  Transmission Date: 20050107
  Serious: Yes (Death, Hospitalization)
  Sender: FDA-Public Use
  Company Number: 2004220085US

PATIENT
  Age: 74 Year
  Sex: Female
  Weight: 62.8 kg

DRUGS (5)
  1. CAMPTOSAR [Suspect]
     Indication: GLIOBLASTOMA MULTIFORME
     Dosage: 208 MG, WEEKLY Q4WKS, IV
     Route: 042
  2. COMPARATOR-THALIDOMIDE (THALIDOMIDE) CAPSULE [Suspect]
     Indication: GLIOBLASTOMA MULTIFORME
     Dosage: ORAL
     Route: 048
  3. DECADRON [Concomitant]
  4. LIPITOR [Concomitant]
  5. CALCIUM [Concomitant]

REACTIONS (2)
  - MULTI-ORGAN FAILURE [None]
  - SEPSIS [None]
